FAERS Safety Report 11711783 (Version 1)
Quarter: 2015Q4

REPORT INFORMATION
  Report Type: Spontaneous
  Country: US (occurrence: US)
  Receive Date: 20151104
  Receipt Date: 20151104
  Transmission Date: 20160304
  Serious: No
  Sender: FDA-Public Use
  Company Number: US-ELI_LILLY_AND_COMPANY-US201105003287

PATIENT
  Sex: Female

DRUGS (2)
  1. FORTEO [Suspect]
     Active Substance: TERIPARATIDE
     Indication: OSTEOPOROSIS
     Dosage: 20 UG, QD
     Route: 065
     Dates: start: 200911
  2. FORTEO [Suspect]
     Active Substance: TERIPARATIDE
     Dosage: 20 UG, QD
     Route: 065
     Dates: end: 20110504

REACTIONS (9)
  - Feeling abnormal [Unknown]
  - Muscle spasms [Unknown]
  - Fear [Unknown]
  - Constipation [Unknown]
  - Intentional product misuse [Unknown]
  - Erythema [Unknown]
  - Swelling face [Unknown]
  - Vomiting [Recovered/Resolved]
  - Nausea [Recovered/Resolved]
